FAERS Safety Report 5758929-8 (Version None)
Quarter: 2008Q2

REPORT INFORMATION
  Report Type: 
  Country: None (occurrence: None)
  Receive Date: 20080603
  Receipt Date: 20080603
  Transmission Date: 20081010
  Serious: Yes (Other)
  Sender: FDA-Public Use
  Company Number: None

PATIENT
  Age: 4 Year
  Sex: Female
  Weight: 15.8759 kg

DRUGS (1)
  1. CIPRODEX [Suspect]
     Indication: OTITIS EXTERNA
     Dosage: THREE DROPS IN LEFT EAR TWICE A DAY
     Dates: start: 20080531, end: 20080602

REACTIONS (3)
  - OTORRHOEA [None]
  - PAIN [None]
  - SCREAMING [None]
